FAERS Safety Report 4704220-8 (Version None)
Quarter: 2005Q2

REPORT INFORMATION
  Report Type: 
  Country: None (occurrence: None)
  Receive Date: 20050630
  Receipt Date: 20050620
  Transmission Date: 20051028
  Serious: Yes (Other)
  Sender: FDA-Public Use
  Company Number: PHEH2005US06955

PATIENT
  Age: 74 Year
  Sex: Male

DRUGS (5)
  1. GLEEVEC [Suspect]
     Indication: CHRONIC MYELOID LEUKAEMIA
     Dosage: 600 MG, QD
     Route: 048
     Dates: start: 20010601
  2. DIOVAN HCT [Concomitant]
  3. PROSCAR [Concomitant]
  4. LORAZEPAM [Concomitant]
  5. PLENDIL [Concomitant]

REACTIONS (1)
  - MYELOFIBROSIS [None]
